FAERS Safety Report 21683446 (Version 1)
Quarter: 2022Q4

REPORT INFORMATION
  Report Type: Spontaneous
  Country: US (occurrence: None)
  Receive Date: 20221202
  Receipt Date: 20221202
  Transmission Date: 20230112
  Serious: Yes (Hospitalization)
  Sender: FDA-Public Use
  Company Number: None

PATIENT
  Age: 40 Year
  Sex: Female

DRUGS (2)
  1. VESANOID [Suspect]
     Active Substance: TRETINOIN
     Dosage: FREQUENCY : TWICE A DAY;?
     Route: 048
  2. JUNEL 24 FE 1/20 [Concomitant]

REACTIONS (1)
  - Acute promyelocytic leukaemia [None]

NARRATIVE: CASE EVENT DATE: 20221118
